FAERS Safety Report 7137716-2 (Version None)
Quarter: 2010Q4

REPORT INFORMATION
  Report Type: 
  Country: None (occurrence: None)
  Receive Date: 20101103
  Receipt Date: 20100628
  Transmission Date: 20110411
  Serious: Yes (Other)
  Sender: FDA-Public Use
  Company Number: 2010S1000707

PATIENT
  Age: 79 Year
  Sex: Female

DRUGS (5)
  1. CUBICIN [Suspect]
     Indication: STAPHYLOCOCCAL INFECTION
     Dosage: 500 MG; QD; IV
     Route: 042
     Dates: start: 20091114, end: 20091119
  2. NICARDIPINE HYDROCHLORIDE [Suspect]
     Dosage: 50 MG; BID; PO
     Route: 048
     Dates: start: 20091110, end: 20091117
  3. VANCOMYCIN [Concomitant]
  4. FLUINDIONE [Concomitant]
  5. TAHOR [Concomitant]

REACTIONS (1)
  - RASH [None]
